FAERS Safety Report 20697076 (Version 1)
Quarter: 2022Q2

REPORT INFORMATION
  Report Type: Other
  Country: US (occurrence: None)
  Receive Date: 20220411
  Receipt Date: 20220411
  Transmission Date: 20220721
  Serious: Yes (Hospitalization)
  Sender: FDA-Public Use
  Company Number: US-ROCHE-3065569

PATIENT
  Sex: Male

DRUGS (2)
  1. OCREVUS [Suspect]
     Active Substance: OCRELIZUMAB
     Indication: Relapsing-remitting multiple sclerosis
     Dosage: DATE OF TREATMENT: 05/FEB/2019, 29/DEC/2021
     Route: 065
     Dates: start: 20180702
  2. OCREVUS [Suspect]
     Active Substance: OCRELIZUMAB
     Dosage: PREVIOUS DATE OF TREATMENT
     Route: 065
     Dates: start: 20170726

REACTIONS (3)
  - Multiple sclerosis relapse [Unknown]
  - Pneumonia [Unknown]
  - COVID-19 [Unknown]
